FAERS Safety Report 8465586-9 (Version None)
Quarter: 2012Q2

REPORT INFORMATION
  Report Type: 
  Country: None (occurrence: None)
  Receive Date: 20120626
  Receipt Date: 20120613
  Transmission Date: 20120825
  Serious: Yes (Hospitalization)
  Sender: FDA-Public Use
  Company Number: GB-CELGENEUS-167-CCAZA-11091445

PATIENT
  Sex: Female
  Weight: 64.8 kg

DRUGS (34)
  1. AZACITIDINE [Suspect]
     Dosage: 75 MILLIGRAM/SQ. METER
     Route: 058
     Dates: start: 20110908, end: 20110914
  2. SODIUM ALGINATE [Concomitant]
     Indication: ANTACID THERAPY
     Dosage: 10-20ML 4 TIMES DAILY
     Route: 065
     Dates: start: 20071118
  3. CIPROFLOXACIN [Concomitant]
     Indication: ANTIBIOTIC PROPHYLAXIS
     Dosage: 500 MILLIGRAM
     Route: 065
     Dates: start: 20110718
  4. SALMETEROL XINAFOATE [Concomitant]
     Dosage: 2 DOSAGE FORMS
     Route: 055
     Dates: start: 20110127
  5. ORAMORPH SR [Concomitant]
     Indication: ABDOMINAL PAIN
     Dosage: 5-10MG
     Route: 065
     Dates: start: 20110826
  6. ACETAMINOPHEN AND CODEINE PHOSPHATE [Concomitant]
     Dosage: 1 (15/500MG) TO 2 (30/1000MG) AS NEEDED
     Route: 065
     Dates: start: 20090513, end: 20110912
  7. LACTULOSE [Concomitant]
     Indication: CONSTIPATION
     Dosage: 5-10ML AS NEEDED
     Route: 065
     Dates: start: 20060815, end: 20110912
  8. QVAR 40 [Concomitant]
     Dosage: 400 MICROGRAM
     Route: 065
     Dates: start: 20110114
  9. AZACITIDINE [Suspect]
     Dosage: 75 MILLIGRAM/SQ. METER
     Route: 058
     Dates: start: 20111005, end: 20111011
  10. ADCAL D3 [Concomitant]
     Indication: HYPERCALCAEMIA
     Dosage: 2 MILLIGRAM
     Route: 065
     Dates: start: 20060607
  11. RAMIPRIL [Concomitant]
     Indication: HYPERTENSION
     Dosage: 1.25 MILLIGRAM
     Route: 065
     Dates: start: 20091130
  12. FLUTICASONE PROPIONATE [Concomitant]
     Dosage: 2 DOSAGE FORMS
     Route: 055
     Dates: start: 20080815
  13. SODIUM CHLORIDE [Concomitant]
     Indication: NEUTROPENIC SEPSIS
     Dosage: 1000 MILLILITER
     Route: 065
     Dates: start: 20120206, end: 20120207
  14. NORMAL SALINE WITH MAGNESIUM SULPHATE 20MMOLS [Concomitant]
     Indication: NEUTROPENIC SEPSIS
     Dosage: 1000 MILLILITER
     Route: 065
     Dates: start: 20120207, end: 20120207
  15. DIFFLAM [Concomitant]
     Dosage: 20 MILLILITER
     Route: 065
     Dates: start: 20110921
  16. BUSCOPAN BUTYLBROMIDE [Concomitant]
     Indication: ABDOMINAL PAIN
     Dosage: 10-20MG
     Route: 065
     Dates: start: 20110831
  17. OMEPRAZOLE [Concomitant]
     Dosage: 20 MILLIGRAM
     Route: 065
     Dates: start: 20100824, end: 20110912
  18. FLUCONAZOLE [Concomitant]
     Indication: ANTIFUNGAL PROPHYLAXIS
     Dosage: 400 MILLIGRAM
     Route: 065
     Dates: start: 20110718
  19. SODIUM CHLORIDE [Concomitant]
     Dosage: 2000 MILLILITER
     Route: 065
     Dates: start: 20120208, end: 20120208
  20. SIMVASTATIN [Concomitant]
     Route: 065
     Dates: start: 20110814
  21. SODIUM PICOSULFATE [Concomitant]
     Indication: CONSTIPATION
     Dosage: 4 GRAM
     Route: 065
     Dates: start: 20110202
  22. CIPROFLOXACIN [Concomitant]
     Dosage: 1500 MILLIGRAM
     Route: 065
     Dates: start: 20110805, end: 20110922
  23. FLUCONAZOLE [Concomitant]
     Dosage: 400 MILLIGRAM
     Route: 065
     Dates: start: 20110805
  24. ZARZIO [Concomitant]
     Indication: NEUTROPENIA
     Dosage: 480 MILLIGRAM
     Route: 065
     Dates: start: 20120209, end: 20120212
  25. AUGMENTIN '125' [Concomitant]
     Dosage: 1875 MILLIGRAM
     Route: 065
     Dates: start: 20110926
  26. FYBROGEL [Concomitant]
     Indication: CONSTIPATION
     Route: 065
     Dates: start: 20110330, end: 20110912
  27. ALBUTEROL [Concomitant]
     Dosage: 400 MICROGRAM
     Route: 055
     Dates: start: 20101116
  28. ALBUTEROL [Concomitant]
     Route: 065
  29. FLUDROCORTISONE ACETATE [Concomitant]
     Indication: HYPOTENSION
     Route: 065
     Dates: start: 20110526
  30. AMITRIPTYLINE HCL [Concomitant]
     Indication: DEPRESSION
     Dosage: 75 MILLIGRAM
     Route: 065
     Dates: start: 20060830
  31. ACYCLOVIR [Concomitant]
     Indication: ANTIVIRAL PROPHYLAXIS
     Dosage: 800 MILLIGRAM
     Route: 065
     Dates: start: 20110718
  32. ACYCLOVIR [Concomitant]
     Dosage: 800 MILLIGRAM
     Route: 065
     Dates: start: 20110805
  33. ASPIRIN [Concomitant]
     Indication: ANTIPLATELET THERAPY
     Dosage: 75 MILLIGRAM
     Route: 065
     Dates: start: 20110721
  34. PREGABALIN [Concomitant]
     Indication: SCIATICA
     Route: 065

REACTIONS (3)
  - DEEP VEIN THROMBOSIS [None]
  - CELLULITIS [None]
  - TOOTH INFECTION [None]
